FAERS Safety Report 8208716-6 (Version None)
Quarter: 2012Q1

REPORT INFORMATION
  Report Type: 
  Country: None (occurrence: None)
  Receive Date: 20120314
  Receipt Date: 20120309
  Transmission Date: 20120608
  Serious: Yes (Other)
  Sender: FDA-Public Use
  Company Number: US-PFIZER INC-2011055787

PATIENT
  Sex: Male

DRUGS (6)
  1. ATIVAN [Suspect]
     Indication: ABDOMINAL PAIN UPPER
     Dosage: UNK
     Dates: start: 20110312, end: 20110312
  2. ATIVAN [Suspect]
  3. AVINZA [Suspect]
  4. ZYVOX [Suspect]
     Indication: URINARY TRACT INFECTION
     Dosage: UNK
     Dates: start: 20110312, end: 20110312
  5. AVINZA [Suspect]
     Indication: ABDOMINAL PAIN UPPER
     Dosage: UNK
     Dates: start: 20110312, end: 20110312
  6. MORPHINE [Suspect]
     Dosage: UNK

REACTIONS (6)
  - MUSCLE TWITCHING [None]
  - HYPOAESTHESIA [None]
  - DYSARTHRIA [None]
  - DEPRESSED LEVEL OF CONSCIOUSNESS [None]
  - DYSPNOEA [None]
  - ABDOMINAL PAIN UPPER [None]
